FAERS Safety Report 8010404-6 (Version None)
Quarter: 2011Q4

REPORT INFORMATION
  Report Type: 
  Country: None (occurrence: None)
  Receive Date: 20111228
  Receipt Date: 20111220
  Transmission Date: 20120403
  Serious: Yes (Other)
  Sender: FDA-Public Use
  Company Number: US-BAYER-2011-111982

PATIENT
  Sex: Female

DRUGS (1)
  1. MIRENA [Suspect]
     Dosage: 20 MCG/24HR, CONT
     Dates: start: 20110525

REACTIONS (3)
  - ABORTION MISSED [None]
  - PREGNANCY WITH CONTRACEPTIVE DEVICE [None]
  - DEVICE DISLOCATION [None]
